FAERS Safety Report 5074762-7 (Version None)
Quarter: 2006Q3

REPORT INFORMATION
  Report Type: 
  Country: None (occurrence: None)
  Receive Date: 20060807
  Receipt Date: 20050209
  Transmission Date: 20061208
  Serious: Yes (Hospitalization)
  Sender: FDA-Public Use
  Company Number: 10260

PATIENT
  Age: 73 Year
  Sex: Female

DRUGS (4)
  1. IRINOTECAN ROVI [Suspect]
     Dosage: 338 MG DAILY IV
     Route: 042
     Dates: start: 20040510, end: 20040510
  2. FOLINIC ACID [Suspect]
     Dosage: 752 MG DAILY IV
     Route: 042
     Dates: start: 20040510, end: 20040510
  3. FLUOROURACIL [Suspect]
     Dosage: 752 MG DAILY IV
     Route: 042
     Dates: start: 20040510, end: 20040510
  4. FLUOROURACIL [Suspect]
     Dosage: 4.5 G TOTAL SC
     Route: 058
     Dates: start: 20040510, end: 20040510

REACTIONS (3)
  - ACUTE PULMONARY OEDEMA [None]
  - GRANULOCYTOPENIA [None]
  - PULMONARY EMBOLISM [None]
